FAERS Safety Report 7126385-3 (Version None)
Quarter: 2010Q4

REPORT INFORMATION
  Report Type: 
  Country: None (occurrence: None)
  Receive Date: 20101129
  Receipt Date: 20101118
  Transmission Date: 20110411
  Serious: No
  Sender: FDA-Public Use
  Company Number: US-B.I. PHARMACEUTICALS,INC./RIDGEFIELD-2010-BP-11917BP

PATIENT
  Sex: Female

DRUGS (3)
  1. SPIRIVA [Suspect]
     Indication: CHRONIC OBSTRUCTIVE PULMONARY DISEASE
     Dosage: 18 MCG
     Route: 055
     Dates: start: 20100801
  2. FLUTICASONE PROPIONATE [Concomitant]
     Indication: SINUS DISORDER
  3. TYLENOL (CAPLET) [Concomitant]
     Indication: ARTHRITIS

REACTIONS (1)
  - DRUG EFFECT DECREASED [None]
